FAERS Safety Report 5927273-8 (Version None)
Quarter: 2008Q4

REPORT INFORMATION
  Report Type: 
  Country: None (occurrence: None)
  Receive Date: 20081022
  Receipt Date: 20081013
  Transmission Date: 20090506
  Serious: Yes (Other)
  Sender: FDA-Public Use
  Company Number: GB-MERCK-0810GBR00064

PATIENT
  Age: 68 Year
  Sex: Female

DRUGS (1)
  1. HYZAAR [Suspect]
     Route: 048
     Dates: start: 20060101, end: 20080101

REACTIONS (1)
  - BRAIN NEOPLASM [None]
